FAERS Safety Report 7555070-9 (Version None)
Quarter: 2011Q2

REPORT INFORMATION
  Report Type: 
  Country: None (occurrence: None)
  Receive Date: 20110610
  Receipt Date: 20110601
  Transmission Date: 20111010
  Serious: Yes (Hospitalization)
  Sender: FDA-Public Use
  Company Number: 1000021521

PATIENT
  Age: 48 Year
  Sex: Female

DRUGS (8)
  1. TREO (ANACIN /00141001/) (TABLETS) (ANACIN /00141001/) [Concomitant]
  2. PANDEMRIX (VACCINES) (INJECTION) [Suspect]
     Indication: IMMUNISATION
     Dosage: (0.5 ML), OTHER
     Route: 050
     Dates: start: 20091229, end: 20091229
  3. ALMOGRAN (ALMOTRIPTAN MALATE) (TABLETS) (ALMOTRIPTAN MALATE) [Concomitant]
  4. LEVAXIN (LEVOTHYROXINE SODIUM) (TABLETS) (LEVOTHYROXINE SODIUM) [Concomitant]
  5. ESCITALOPRAM [Suspect]
     Indication: DEPRESSION
     Dosage: 15 MG (15 MG, 1 IN 1 D), ORAL
     Route: 048
     Dates: start: 20090825, end: 20100531
  6. IMOVANE (ZOPICLONE) (TABLETS) (ZOPICLONE) [Concomitant]
  7. CITODON (CO-DAFALGAN) (TABLETS) (CO-DAFALGAN) [Concomitant]
  8. NAPROSYN (NAPROXEN) (TABLETS) (NAPROXEN) [Concomitant]

REACTIONS (6)
  - AMYOTROPHIC LATERAL SCLEROSIS [None]
  - WEIGHT DECREASED [None]
  - MUSCLE CONTRACTIONS INVOLUNTARY [None]
  - DYSARTHRIA [None]
  - DYSPHAGIA [None]
  - TONGUE ATROPHY [None]
